FAERS Safety Report 11240688 (Version 1)
Quarter: 2015Q3

REPORT INFORMATION
  Report Type: Spontaneous
  Country: US (occurrence: GB)
  Receive Date: 20150706
  Receipt Date: 20150706
  Transmission Date: 20151125
  Serious: Yes (Other)
  Sender: FDA-Public Use
  Company Number: GB-FRI-1000077930

PATIENT
  Age: 54 Year
  Sex: Male

DRUGS (10)
  1. MEROPENEM. [Concomitant]
     Active Substance: MEROPENEM
     Dates: start: 20150605, end: 20150611
  2. PHOSPHATE SANDOZ [Concomitant]
     Dates: start: 20150604, end: 20150608
  3. SANDO-K [Concomitant]
     Active Substance: POTASSIUM BICARBONATE\POTASSIUM CHLORIDE
     Dates: start: 20150603, end: 20150605
  4. CLINDAMYCIN [Concomitant]
     Active Substance: CLINDAMYCIN\CLINDAMYCIN PHOSPHATE
     Dates: start: 20150603, end: 20150611
  5. CEFTAROLINE FOSAMIL [Suspect]
     Active Substance: CEFTAROLINE FOSAMIL
     Indication: SOFT TISSUE INFECTION
     Route: 042
     Dates: start: 20150611, end: 20150612
  6. TINZAPARIN [Concomitant]
     Active Substance: TINZAPARIN
     Dates: start: 20150602
  7. VANCOMYCIN [Concomitant]
     Active Substance: VANCOMYCIN
     Dates: start: 20150603, end: 20150605
  8. MEBENDAZOLE. [Concomitant]
     Active Substance: MEBENDAZOLE
  9. BENZYLPENICILLIN [Concomitant]
     Active Substance: PENICILLIN G
     Dates: start: 20150602, end: 20150603
  10. FLUCLOXACILLIN [Concomitant]
     Active Substance: FLUCLOXACILLIN
     Dates: start: 20150602, end: 20150603

REACTIONS (2)
  - Dermatitis allergic [Recovering/Resolving]
  - Drug ineffective [Unknown]

NARRATIVE: CASE EVENT DATE: 20150612
